FAERS Safety Report 6679959-8 (Version None)
Quarter: 2010Q2

REPORT INFORMATION
  Report Type: 
  Country: None (occurrence: None)
  Receive Date: 20100413
  Receipt Date: 20100330
  Transmission Date: 20101027
  Serious: Yes (Hospitalization, Other)
  Sender: FDA-Public Use
  Company Number: US-MYLANLABS-2010S1005348

PATIENT
  Age: 66 Year
  Sex: Female

DRUGS (12)
  1. CLONIDINE [Suspect]
     Indication: HYPERTENSION
     Route: 048
  2. CLONIDINE [Suspect]
     Route: 048
  3. ATORVASTATIN [Suspect]
     Route: 065
  4. DULOXETINE HYDROCHLORIDE [Interacting]
     Indication: DEPRESSION
     Route: 048
  5. MEMANTINE [Concomitant]
     Indication: DEMENTIA
     Route: 048
  6. DONEPEZIL HCL [Concomitant]
     Indication: DEMENTIA
     Route: 048
  7. METOPROLOL TARTRATE [Concomitant]
     Indication: HYPERTENSION
     Route: 048
  8. AMLODIPINE [Concomitant]
     Indication: HYPERTENSION
     Route: 048
  9. ASPIRIN [Concomitant]
     Route: 065
  10. CLOPIDOGREL [Concomitant]
     Route: 048
  11. FENTANYL [Concomitant]
     Indication: ANAESTHESIA
     Route: 042
  12. MIDAZOLAM HCL [Concomitant]
     Indication: ANAESTHESIA
     Route: 042

REACTIONS (3)
  - BLOOD CREATINE PHOSPHOKINASE INCREASED [None]
  - DRUG INTERACTION [None]
  - PYREXIA [None]
